FAERS Safety Report 7916496-4 (Version None)
Quarter: 2011Q4

REPORT INFORMATION
  Report Type: 
  Country: None (occurrence: None)
  Receive Date: 20111114
  Receipt Date: 20111028
  Transmission Date: 20120403
  Serious: Yes (Hospitalization)
  Sender: FDA-Public Use
  Company Number: DEP_00520_2011

PATIENT
  Age: 50 Year
  Sex: Male

DRUGS (1)
  1. METFORMIN HCL [Suspect]
     Indication: PRODUCT USED FOR UNKNOWN INDICATION
     Dosage: (52 G 1X ORAL), (500 MG BID)
     Route: 048

REACTIONS (8)
  - FEELING ABNORMAL [None]
  - LACTIC ACIDOSIS [None]
  - INCORRECT DOSE ADMINISTERED [None]
  - MENTAL STATUS CHANGES [None]
  - HYPOTENSION [None]
  - HAEMODIALYSIS [None]
  - RENAL FAILURE ACUTE [None]
  - SUICIDE ATTEMPT [None]
